FAERS Safety Report 13858407 (Version 6)
Quarter: 2018Q3

REPORT INFORMATION
  Report Type: Spontaneous
  Country: JP (occurrence: JP)
  Receive Date: 20170811
  Receipt Date: 20180702
  Transmission Date: 20181010
  Serious: Yes (Death, Other)
  Sender: FDA-Public Use
  Company Number: JP-009507513-1703JPN003027J

PATIENT
  Age: 58 Year
  Sex: Female
  Weight: 45 kg

DRUGS (4)
  1. KEYTRUDA [Suspect]
     Active Substance: PEMBROLIZUMAB
     Indication: NODULAR MELANOMA
     Dosage: 2 MG/KG, Q3W
     Route: 041
     Dates: start: 20170306, end: 20170327
  2. THYRADIN [Concomitant]
     Active Substance: LEVOTHYROXINE
     Dosage: 25 MICROGRAM, QD
     Route: 048
     Dates: start: 20170126, end: 20170603
  3. PREDONINE [Concomitant]
     Active Substance: PREDNISOLONE
     Indication: PROPHYLAXIS
     Dosage: 45 MG, BID
     Route: 048
     Dates: start: 20161208, end: 20170602
  4. PREDNISOLONE. [Concomitant]
     Active Substance: PREDNISOLONE
     Dosage: 45 MG, TID
     Route: 048
     Dates: start: 20161208, end: 20170603

REACTIONS (2)
  - Death [Fatal]
  - Imaging procedure abnormal [Recovering/Resolving]

NARRATIVE: CASE EVENT DATE: 20170327
